FAERS Safety Report 16116963 (Version 2)
Quarter: 2020Q1

REPORT INFORMATION
  Report Type: Spontaneous
  Country: US (occurrence: US)
  Receive Date: 20190326
  Receipt Date: 20200115
  Transmission Date: 20200409
  Serious: No
  Sender: FDA-Public Use
  Company Number: US-PFIZER INC-2019100545

PATIENT
  Age: 49 Year
  Sex: Female
  Weight: 96 kg

DRUGS (3)
  1. LYRICA [Suspect]
     Active Substance: PREGABALIN
     Dosage: 375 MG, DAILY(2 IN THE MORNING, 1 AT LUNCH, AND 2 IN THE EVENING)
     Route: 048
  2. LYRICA [Suspect]
     Active Substance: PREGABALIN
     Indication: FIBROMYALGIA
     Dosage: 75 MG, 4X/DAY
     Route: 048
     Dates: start: 20190221, end: 2019
  3. LYRICA [Suspect]
     Active Substance: PREGABALIN
     Indication: NEUROPATHY PERIPHERAL
     Dosage: 75 MG, 3X/DAY
     Route: 048

REACTIONS (3)
  - Joint swelling [Unknown]
  - Pain [Unknown]
  - Musculoskeletal pain [Unknown]
